FAERS Safety Report 12884952 (Version 1)
Quarter: 2016Q4

REPORT INFORMATION
  Report Type: Spontaneous
  Country: US (occurrence: US)
  Receive Date: 20161026
  Receipt Date: 20161026
  Transmission Date: 20170207
  Serious: Yes (Death, Other)
  Sender: FDA-Public Use
  Company Number: US-PAR PHARMACEUTICAL, INC-2016SCPR015576

PATIENT

DRUGS (4)
  1. OTHER UNKNOWN DRUGS [Concomitant]
     Indication: SUBSTANCE USE
     Dosage: UNK, UNKNOWN
     Route: 065
  2. HEROIN [Concomitant]
     Active Substance: DIACETYLMORPHINE
     Indication: SUBSTANCE USE
     Dosage: UNK, UNKNOWN
     Route: 065
  3. FENTANYL. [Suspect]
     Active Substance: FENTANYL
     Indication: PRODUCT USED FOR UNKNOWN INDICATION
     Dosage: UNK, UNKNOWN
     Route: 065
  4. PERCOCET                           /00446701/ [Concomitant]
     Active Substance: ACETAMINOPHEN\OXYCODONE HYDROCHLORIDE\OXYCODONE TEREPHTHALATE
     Indication: SUBSTANCE USE
     Dosage: UNK, UNKNOWN
     Route: 065

REACTIONS (1)
  - Overdose [Fatal]

NARRATIVE: CASE EVENT DATE: 2015
